FAERS Safety Report 7399611-3 (Version None)
Quarter: 2011Q2

REPORT INFORMATION
  Report Type: 
  Country: None (occurrence: None)
  Receive Date: 20110407
  Receipt Date: 20110307
  Transmission Date: 20111010
  Serious: Yes (Other)
  Sender: FDA-Public Use
  Company Number: US-BAYER-201030262NA

PATIENT
  Sex: Female
  Weight: 94.331 kg

DRUGS (7)
  1. SERTRALINE HYDROCHLORIDE [Concomitant]
     Dosage: UNK
     Dates: start: 20090501, end: 20090801
  2. AZITHROMYCIN [Concomitant]
     Dosage: UNK
     Dates: start: 20080701
  3. BENZOYL PEROXIDE [Concomitant]
  4. YAZ [Suspect]
     Indication: PRODUCT USED FOR UNKNOWN INDICATION
     Dosage: UNK
     Route: 048
     Dates: start: 20080701, end: 20090401
  5. AMOXICILLIN [Concomitant]
     Dosage: UNK
     Dates: start: 20080601
  6. AZITHROMYCIN [Concomitant]
     Dosage: UNK
     Dates: start: 20090301
  7. GLYBURIDE [Concomitant]

REACTIONS (2)
  - CHOLECYSTITIS [None]
  - GALLBLADDER DISORDER [None]
